FAERS Safety Report 9491444 (Version 1)
Quarter: 2013Q1

REPORT INFORMATION
  Report Type: Not Available
  Country: US (occurrence: US)
  Receive Date: 20120619
  Receipt Date: 20120619
  Transmission Date: 20140127
  Serious: No
  Sender: FDA-Public Use
  Company Number: US-LUNDBECK-DKLU1076684

PATIENT
  Sex: Female

DRUGS (2)
  1. ONFI [Suspect]
     Indication: PRODUCT USED FOR UNKNOWN INDICATION
     Route: 048
     Dates: end: 20120203
  2. ONFI [Suspect]
     Route: 048
     Dates: start: 20120203

REACTIONS (3)
  - Abdominal pain upper [Not Recovered/Not Resolved]
  - Headache [Not Recovered/Not Resolved]
  - Insomnia [Not Recovered/Not Resolved]
